FAERS Safety Report 16975201 (Version 1)
Quarter: 2019Q4

REPORT INFORMATION
  Report Type: Spontaneous
  Country: US (occurrence: US)
  Receive Date: 20191029
  Receipt Date: 20191029
  Transmission Date: 20200122
  Serious: No
  Sender: FDA-Public Use
  Company Number: None

PATIENT
  Age: 2 Year
  Sex: Female

DRUGS (3)
  1. ORKAMBI [Suspect]
     Active Substance: IVACAFTOR\LUMACAFTOR
     Indication: CYSTIC FIBROSIS
     Route: 048
  2. CREON 6000 UNITS [Concomitant]
  3. MVW PEDIATRIC DROPS [Concomitant]

REACTIONS (1)
  - Ear infection [None]

NARRATIVE: CASE EVENT DATE: 20191024
